FAERS Safety Report 7204336-0 (Version None)
Quarter: 2010Q4

REPORT INFORMATION
  Report Type: 
  Country: None (occurrence: None)
  Receive Date: 20101230
  Receipt Date: 20101228
  Transmission Date: 20110411
  Serious: Yes (Death)
  Sender: FDA-Public Use
  Company Number: US-JNJFOC-20101208704

PATIENT
  Sex: Female
  Weight: 52.16 kg

DRUGS (16)
  1. DURAGESIC-100 [Suspect]
     Indication: OSTEOARTHRITIS
     Route: 062
  2. DURAGESIC-100 [Suspect]
     Route: 062
  3. FELODIPINE [Concomitant]
     Indication: BLOOD PRESSURE
     Route: 048
  4. ZOCOR [Concomitant]
     Indication: BLOOD CHOLESTEROL
     Route: 048
  5. HYDROCODONE [Concomitant]
     Indication: PAIN
     Route: 048
  6. HYDREA [Concomitant]
     Indication: PLATELET DISORDER
     Route: 048
  7. LEVOTHYROXINE [Concomitant]
     Indication: THYROID DISORDER
     Route: 048
  8. LASIX [Concomitant]
     Indication: BLOOD PRESSURE
     Route: 048
  9. LISINOPRIL [Concomitant]
     Indication: BLOOD PRESSURE
     Route: 048
  10. ATENOLOL [Concomitant]
     Indication: BLOOD PRESSURE
     Route: 048
  11. GEMFIBROZIL [Concomitant]
     Indication: BLOOD TRIGLYCERIDES
     Route: 048
  12. MAGNESIUM OXIDE [Concomitant]
     Indication: BLOOD MAGNESIUM DECREASED
     Route: 048
  13. MECLIZINE [Concomitant]
     Indication: DIZZINESS
     Route: 048
  14. ASPIRIN [Concomitant]
     Indication: PRODUCT USED FOR UNKNOWN INDICATION
     Route: 048
  15. MULTI-VITAMINS [Concomitant]
     Indication: MEDICAL DIET
     Route: 048
  16. POTASSIUM [Concomitant]
     Indication: BLOOD POTASSIUM DECREASED
     Route: 048

REACTIONS (2)
  - CARDIAC FAILURE CONGESTIVE [None]
  - CONDITION AGGRAVATED [None]
